FAERS Safety Report 16891989 (Version 1)
Quarter: 2019Q4

REPORT INFORMATION
  Report Type: Report from Study
  Country: US (occurrence: US)
  Receive Date: 20191007
  Receipt Date: 20191007
  Transmission Date: 20200122
  Serious: Yes (Hospitalization, Other)
  Sender: FDA-Public Use
  Company Number: US-BRISTOL-MYERS SQUIBB COMPANY-BMS-2019-033733

PATIENT
  Age: 27 Year
  Sex: Female
  Weight: 93.4 kg

DRUGS (3)
  1. NIVOLUMAB [Suspect]
     Active Substance: NIVOLUMAB
     Indication: B PRECURSOR TYPE ACUTE LEUKAEMIA
     Dosage: 240 MILLIGRAM
     Route: 042
     Dates: start: 20190226, end: 20190308
  2. IPILIMUMAB [Suspect]
     Active Substance: IPILIMUMAB
     Indication: B PRECURSOR TYPE ACUTE LEUKAEMIA
     Dosage: 97 MILLIGRAM
     Route: 042
     Dates: start: 20190226, end: 20190308
  3. BLINATUMOMAB [Suspect]
     Active Substance: BLINATUMOMAB
     Indication: B PRECURSOR TYPE ACUTE LEUKAEMIA
     Dosage: 343 MICROGRAM
     Route: 042
     Dates: start: 20190226, end: 20190308

REACTIONS (7)
  - Diarrhoea [Recovered/Resolved]
  - Colitis [Recovering/Resolving]
  - Sinusitis [Recovering/Resolving]
  - Nasal congestion [Recovered/Resolved]
  - Graft versus host disease [Recovering/Resolving]
  - Productive cough [Recovered/Resolved]
  - Stomatitis [Recovering/Resolving]

NARRATIVE: CASE EVENT DATE: 20190319
